FAERS Safety Report 16747414 (Version 1)
Quarter: 2019Q3

REPORT INFORMATION
  Report Type: Spontaneous
  Country: FR (occurrence: FR)
  Receive Date: 20190827
  Receipt Date: 20190827
  Transmission Date: 20191005
  Serious: Yes (Other)
  Sender: FDA-Public Use
  Company Number: FR-NAPPMUNDI-GBR-2019-0069557

PATIENT
  Age: 87 Year
  Sex: Female
  Weight: 52 kg

DRUGS (4)
  1. OXYNORMORO [Suspect]
     Active Substance: OXYCODONE HYDROCHLORIDE
     Indication: PAIN
     Dosage: STRENGTH 10 MG
     Route: 048
     Dates: start: 20181108, end: 20181113
  2. DOLIPRANE [Concomitant]
     Active Substance: ACETAMINOPHEN
  3. DUROGESIC [Suspect]
     Active Substance: FENTANYL
     Indication: PAIN
     Dosage: UNK
     Route: 062
     Dates: start: 20181108, end: 20181113
  4. KENZEN [Concomitant]
     Active Substance: CANDESARTAN CILEXETIL

REACTIONS (4)
  - Wrong technique in product usage process [Recovered/Resolved]
  - Duplicate therapy error [Recovered/Resolved]
  - Oxygen saturation decreased [Recovered/Resolved]
  - Vomiting [Recovered/Resolved]

NARRATIVE: CASE EVENT DATE: 20181112
